FAERS Safety Report 5466328-1 (Version None)
Quarter: 2007Q3

REPORT INFORMATION
  Report Type: 
  Country: None (occurrence: None)
  Receive Date: 20070920
  Receipt Date: 20070904
  Transmission Date: 20080115
  Serious: Yes (Hospitalization)
  Sender: FDA-Public Use
  Company Number: 2006RL000208

PATIENT
  Age: 61 Year
  Sex: Male
  Weight: 88.905 kg

DRUGS (11)
  1. RYTHMOL [Suspect]
     Indication: ATRIAL FIBRILLATION
     Dosage: 425 MG;QD; PO; 325 MG; BID; PO
     Route: 048
     Dates: start: 20051108, end: 20051122
  2. RYTHMOL [Suspect]
     Indication: ATRIAL FIBRILLATION
     Dosage: 425 MG;QD; PO; 325 MG; BID; PO
     Route: 048
     Dates: start: 20051122, end: 20060212
  3. WARFARIN SODIUM [Concomitant]
  4. ASPIRIN [Concomitant]
  5. ACTOS [Concomitant]
  6. PRANDIN [Concomitant]
  7. GLUCOPHAGE [Concomitant]
  8. METOCLOPRAMIDE [Concomitant]
  9. CAPTOPRIL [Concomitant]
  10. PRAVACHOL [Concomitant]
  11. CARDURA [Concomitant]

REACTIONS (5)
  - ATRIAL FIBRILLATION [None]
  - DRUG INEFFECTIVE [None]
  - PROTHROMBIN TIME ABNORMAL [None]
  - RED CELL DISTRIBUTION WIDTH ABNORMAL [None]
  - WHITE BLOOD CELL COUNT ABNORMAL [None]
